FAERS Safety Report 14583113 (Version 1)
Quarter: 2018Q1

REPORT INFORMATION
  Report Type: Not Available
  Country: US (occurrence: US)
  Receive Date: 20180228
  Receipt Date: 20180228
  Transmission Date: 20180509
  Serious: No
  Sender: FDA-Public Use
  Company Number: US-HISAMITSU-2017-US-014924

PATIENT
  Age: 89 Year
  Sex: Male
  Weight: 74.84 kg

DRUGS (4)
  1. SALONPAS (NON-SPECIFIC) [Suspect]
     Active Substance: MENTHOL\METHYL SALICYLATE
     Dosage: 1 PATCH NIGHTLY TO BACK FOR 8-9 HOURS
     Route: 061
     Dates: start: 2017, end: 2017
  2. SALONPAS PAIN RELIEF [Suspect]
     Active Substance: MENTHOL\METHYL SALICYLATE
     Dosage: 1 PATCH NIGHTLY TO BACK FOR 8-9 HOURS
     Route: 061
     Dates: start: 2017
  3. LEVOTHYROXINE. [Concomitant]
     Active Substance: LEVOTHYROXINE
  4. ATENOLOL. [Concomitant]
     Active Substance: ATENOLOL

REACTIONS (2)
  - Application site pain [Not Recovered/Not Resolved]
  - Application site warmth [Not Recovered/Not Resolved]

NARRATIVE: CASE EVENT DATE: 2017
